FAERS Safety Report 11344973 (Version 1)
Quarter: 2015Q3

REPORT INFORMATION
  Report Type: Spontaneous
  Country: US (occurrence: None)
  Receive Date: 20150805
  Receipt Date: 20150805
  Transmission Date: 20151125
  Serious: Yes (Other)
  Sender: FDA-Public Use
  Company Number: None

PATIENT
  Age: 70 Year
  Sex: Female
  Weight: 62.6 kg

DRUGS (8)
  1. LEVOTHYROXINE. [Concomitant]
     Active Substance: LEVOTHYROXINE
  2. CALCIUM [Concomitant]
     Active Substance: CALCIUM
  3. ASPIRIN. [Concomitant]
     Active Substance: ASPIRIN
  4. PROLIA [Suspect]
     Active Substance: DENOSUMAB
     Indication: OSTEOPENIA
     Dosage: 1 ML EVERY 6 MONTHS GIVEN INTO/UNDER THE SKIN
     Route: 058
     Dates: start: 20150428, end: 20150428
  5. VITAMIN D [Concomitant]
     Active Substance: CHOLECALCIFEROL
  6. OMEPRAZOLE. [Concomitant]
     Active Substance: OMEPRAZOLE
  7. PROLIA [Suspect]
     Active Substance: DENOSUMAB
     Indication: OSTEOPOROSIS
     Dosage: 1 ML EVERY 6 MONTHS GIVEN INTO/UNDER THE SKIN
     Route: 058
     Dates: start: 20150428, end: 20150428
  8. QUINAPRIL [Concomitant]
     Active Substance: QUINAPRIL\QUINAPRIL HYDROCHLORIDE

REACTIONS (10)
  - Tongue discolouration [None]
  - Swollen tongue [None]
  - Throat irritation [None]
  - Dysgeusia [None]
  - Palatal swelling [None]
  - Dysphagia [None]
  - Lip pain [None]
  - Oral pain [None]
  - Glossodynia [None]
  - Enlarged uvula [None]

NARRATIVE: CASE EVENT DATE: 20150802
